FAERS Safety Report 8019684-4 (Version None)
Quarter: 2012Q1

REPORT INFORMATION
  Report Type: 
  Country: None (occurrence: None)
  Receive Date: 20120103
  Receipt Date: 20110706
  Transmission Date: 20120608
  Serious: Yes (Death)
  Sender: FDA-Public Use
  Company Number: US-GLAXOSMITHKLINE-A0936385A

PATIENT
  Age: 60 Year
  Sex: Female

DRUGS (4)
  1. COZAAR [Concomitant]
  2. NEXIUM [Concomitant]
  3. METHIMAZOLE [Concomitant]
  4. TYKERB [Suspect]
     Indication: BREAST CANCER
     Dosage: 1000MG PER DAY
     Route: 065

REACTIONS (2)
  - DEATH [None]
  - DIARRHOEA [None]
